FAERS Safety Report 4560750-3 (Version None)
Quarter: 2005Q1

REPORT INFORMATION
  Report Type: 
  Country: None (occurrence: None)
  Receive Date: 20050121
  Receipt Date: 20050112
  Transmission Date: 20050727
  Serious: Yes (Other)
  Sender: FDA-Public Use
  Company Number: 2005-01-1067

PATIENT
  Age: 20 Year
  Sex: Female

DRUGS (10)
  1. GENTAMICIN [Suspect]
     Dosage: 240 MG QD INTRAVENOUS
     Route: 042
  2. GENTAMICIN [Suspect]
  3. CEFAZOLIN [Suspect]
     Dosage: 1 GM TID INTRAVENOUS
     Route: 042
  4. CEFAZOLIN [Suspect]
  5. METRONIDAZOLE [Suspect]
     Dosage: 500 MG IV BID
  6. METRONIDAZOLE [Suspect]
  7. HYDROCORTISONE [Concomitant]
  8. LORAZEPAM [Concomitant]
  9. TPN ELECTROLYTES [Concomitant]
  10. METRONIDAZOLE [Concomitant]

REACTIONS (3)
  - DEPRESSED LEVEL OF CONSCIOUSNESS [None]
  - ENCEPHALOPATHY [None]
  - GRAND MAL CONVULSION [None]
